FAERS Safety Report 11047995 (Version 1)
Quarter: 2015Q2

REPORT INFORMATION
  Report Type: Spontaneous
  Country: US (occurrence: US)
  Receive Date: 20150420
  Receipt Date: 20150420
  Transmission Date: 20150821
  Serious: Yes (Other)
  Sender: FDA-Public Use
  Company Number: US-PFIZER INC-2015127901

PATIENT
  Age: 82 Year
  Sex: Female

DRUGS (1)
  1. IBRANCE [Suspect]
     Active Substance: PALBOCICLIB
     Dosage: 100 MG, QD FOR 21 DAYS
     Dates: start: 20150317

REACTIONS (3)
  - Neutropenia [Unknown]
  - Upper respiratory tract infection [Unknown]
  - Dehydration [Unknown]
